FAERS Safety Report 20280607 (Version 1)
Quarter: 2022Q1

REPORT INFORMATION
  Report Type: Spontaneous
  Country: US (occurrence: None)
  Receive Date: 20220101
  Receipt Date: 20220101
  Transmission Date: 20220423
  Serious: Yes (unspecified)
  Sender: FDA-Public Use
  Company Number: None

PATIENT
  Age: 53 Year
  Sex: Female
  Weight: 83.25 kg

DRUGS (7)
  1. NP THYROID [Suspect]
     Active Substance: LEVOTHYROXINE\LIOTHYRONINE
     Indication: Hypothyroidism
     Dosage: OTHER QUANTITY : 2.5 TABLET(S);?
     Route: 048
     Dates: start: 20161201, end: 20211228
  2. ARMOUR THYROID [Concomitant]
     Active Substance: THYROID, PORCINE
  3. CITALOPRAM [Concomitant]
     Active Substance: CITALOPRAM HYDROBROMIDE
  4. ADAPALENE [Concomitant]
     Active Substance: ADAPALENE
  5. CLOBETASOL PROPIONATE [Concomitant]
     Active Substance: CLOBETASOL PROPIONATE
  6. RESMED VPAP [Concomitant]
  7. IBUPROFEN [Concomitant]
     Active Substance: IBUPROFEN

REACTIONS (7)
  - Pain [None]
  - Bursitis [None]
  - Gait disturbance [None]
  - Blood pressure increased [None]
  - Hyperhidrosis [None]
  - Tachycardia [None]
  - Tri-iodothyronine free increased [None]

NARRATIVE: CASE EVENT DATE: 20211201
